FAERS Safety Report 9484305 (Version 1)
Quarter: 2013Q3

REPORT INFORMATION
  Report Type: Spontaneous
  Country: US (occurrence: US)
  Receive Date: 20130828
  Receipt Date: 20130828
  Transmission Date: 20140515
  Serious: Yes (Other)
  Sender: FDA-Public Use
  Company Number: US-AMGEN-KDL401333

PATIENT
  Age: 57 Year
  Sex: Female
  Weight: 113.5 kg

DRUGS (10)
  1. ENBREL [Suspect]
     Indication: PRODUCT USED FOR UNKNOWN INDICATION
     Dosage: 50 MG, QWK
     Route: 058
  2. PREDNISONE [Concomitant]
  3. DULOXETINE [Concomitant]
     Dosage: 20 MG, UNK
  4. LEVOTHRYROXINE SODIUM [Concomitant]
     Dosage: 25 ?G, UNK
  5. FEXOFENADINE HYDROCHLORIDE [Concomitant]
     Dosage: 30 MG, UNK
  6. VERAPAMIL [Concomitant]
     Dosage: 120 MG, UNK
  7. OMEPRAZOLE [Concomitant]
     Dosage: 10 MG, UNK
  8. OXYCODONE [Concomitant]
     Dosage: 5 MG, UNK
  9. ERGOCALCIFEROL [Concomitant]
     Dosage: 400 IU, UNK
  10. FOLIC ACID [Concomitant]
     Dosage: 20 MG, UNK

REACTIONS (3)
  - Respiratory distress [Recovered/Resolved]
  - Pulmonary embolism [Recovered/Resolved]
  - Pneumonia bacterial [Recovered/Resolved]
